FAERS Safety Report 25300797 (Version 1)
Quarter: 2025Q2

REPORT INFORMATION
  Report Type: Spontaneous
  Country: US (occurrence: None)
  Receive Date: 20250509
  Receipt Date: 20250509
  Transmission Date: 20250717
  Serious: Yes (Other)
  Sender: FDA-CTU
  Company Number: None

PATIENT
  Age: 56 Year
  Sex: Male
  Weight: 81.9 kg

DRUGS (5)
  1. METFORMIN HYDROCHLORIDE [Suspect]
     Active Substance: METFORMIN HYDROCHLORIDE
     Indication: Diabetes mellitus
     Dosage: OTHER QUANTITY : 3 TABLET(S);?FREQUENCY : AT BEDTIME;?
     Route: 048
     Dates: start: 20250201, end: 20250429
  2. OZEMPIC [Concomitant]
     Active Substance: SEMAGLUTIDE
  3. REPATHA [Concomitant]
     Active Substance: EVOLOCUMAB
  4. GUANFACINE [Concomitant]
     Active Substance: GUANFACINE
  5. ASPIRIN [Concomitant]
     Active Substance: ASPIRIN

REACTIONS (5)
  - Intentional product use issue [None]
  - Mental disorder [None]
  - Psychotic disorder [None]
  - Aggression [None]
  - Suicidal ideation [None]

NARRATIVE: CASE EVENT DATE: 20250428
